FAERS Safety Report 8258691-3 (Version None)
Quarter: 2012Q2

REPORT INFORMATION
  Report Type: 
  Country: None (occurrence: None)
  Receive Date: 20120404
  Receipt Date: 20120322
  Transmission Date: 20120825
  Serious: Yes (Other)
  Sender: FDA-Public Use
  Company Number: GB-RANBAXY-2012R1-54252

PATIENT
  Age: 67 Year
  Sex: Male
  Weight: 73 kg

DRUGS (5)
  1. LANSOPRAZOLE [Concomitant]
     Indication: DYSPEPSIA
     Dosage: 30 MG, QD
     Route: 065
     Dates: start: 20090508
  2. PERINDOPRIL ERBUMINE [Concomitant]
     Indication: HYPERTENSION
     Dosage: 4 MG, QD
     Route: 065
     Dates: start: 20091009
  3. GAVISCON [Concomitant]
     Indication: DYSPEPSIA
     Dosage: UNK
     Route: 065
     Dates: start: 20071230
  4. SIMVASTATIN [Suspect]
     Indication: BLOOD CHOLESTEROL INCREASED
     Dosage: 40 MG, QD
     Route: 048
     Dates: start: 20060101
  5. NORTRIPTYLINE HCL [Concomitant]
     Indication: IRRITABLE BOWEL SYNDROME
     Dosage: 10 MG, QD
     Route: 065
     Dates: start: 20110311

REACTIONS (1)
  - APHASIA [None]
